FAERS Safety Report 10095944 (Version 1)
Quarter: 2014Q2

REPORT INFORMATION
  Report Type: Spontaneous
  Country: US (occurrence: None)
  Receive Date: 20140410
  Receipt Date: 20140410
  Transmission Date: 20141212
  Serious: Yes (Death)
  Sender: FDA-Public Use
  Company Number: 2014-00450

PATIENT
  Age: 53 Year
  Sex: Female

DRUGS (5)
  1. ZOLPIDEM [Suspect]
     Indication: PRODUCT USED FOR UNKNOWN INDICATION
     Route: 048
  2. ACETAMINOPHEN [Suspect]
     Indication: PRODUCT USED FOR UNKNOWN INDICATION
     Route: 048
  3. FENTANYL [Suspect]
     Route: 048
  4. ACETAMINOPHEN/HYDROCODONE [Suspect]
     Route: 048
  5. ACETAMINOPHEN/HYDROCODONE [Suspect]
     Route: 048

REACTIONS (1)
  - Death [None]
